FAERS Safety Report 11218455 (Version 4)
Quarter: 2015Q4

REPORT INFORMATION
  Report Type: Spontaneous
  Country: JP (occurrence: JP)
  Receive Date: 20150625
  Receipt Date: 20151001
  Transmission Date: 20160304
  Serious: Yes (Hospitalization, Other)
  Sender: FDA-Public Use
  Company Number: JP-PFIZER INC-2015179926

PATIENT
  Age: 88 Year
  Sex: Male

DRUGS (2)
  1. REBAMIPIDE [Concomitant]
     Active Substance: REBAMIPIDE
     Indication: LUMBAR VERTEBRAL FRACTURE
     Dosage: 100 MG, 2X/DAY
     Route: 048
     Dates: start: 20150330, end: 20150410
  2. CELECOX [Suspect]
     Active Substance: CELECOXIB
     Indication: LUMBAR VERTEBRAL FRACTURE
     Dosage: 100 MG, 2X/DAY
     Route: 048
     Dates: start: 20150330, end: 20150410

REACTIONS (4)
  - Petit mal epilepsy [Unknown]
  - Off label use [Unknown]
  - Rash erythematous [Recovered/Resolved]
  - Cerebral infarction [Unknown]

NARRATIVE: CASE EVENT DATE: 20150330
